FAERS Safety Report 9696113 (Version 1)
Quarter: 2013Q4

REPORT INFORMATION
  Report Type: Spontaneous
  Country: CA (occurrence: CA)
  Receive Date: 20131119
  Receipt Date: 20131119
  Transmission Date: 20140711
  Serious: Yes (Disabling)
  Sender: FDA-Public Use
  Company Number: CA-ASTRAZENECA-2013SE83699

PATIENT
  Age: 60 Year
  Sex: Male

DRUGS (10)
  1. CRESTOR [Suspect]
     Route: 048
  2. LANTUS [Suspect]
     Dosage: 70.0 UNITS
     Route: 058
  3. AVAMYS [Concomitant]
  4. AVAPRO [Concomitant]
  5. CELEBREX [Concomitant]
  6. CITALOPRAM [Concomitant]
  7. METFORMIN [Concomitant]
  8. NOVORAPID [Concomitant]
  9. PRAMIPEXOLE [Concomitant]
  10. TRAZODONE [Concomitant]

REACTIONS (3)
  - Pain [Not Recovered/Not Resolved]
  - Restless legs syndrome [Not Recovered/Not Resolved]
  - Muscular weakness [Not Recovered/Not Resolved]
